FAERS Safety Report 24098066 (Version 4)
Quarter: 2024Q3

REPORT INFORMATION
  Report Type: Report from Study
  Country: CA (occurrence: None)
  Receive Date: 20240716
  Receipt Date: 20240814
  Transmission Date: 20241017
  Serious: Yes (Disabling, Other)
  Sender: ASTRAZENECA
  Company Number: 2024A150503

PATIENT
  Age: 44 Year
  Sex: Female
  Weight: 71.2 kg

DRUGS (5)
  1. TEZSPIRE [Suspect]
     Active Substance: TEZEPELUMAB-EKKO
     Indication: Asthma
     Dosage: 210.0MG UNKNOWN
     Route: 058
     Dates: start: 20240319, end: 202406
  2. PROMETRIUM [Suspect]
     Active Substance: PROGESTERONE
     Indication: Asthma
     Dosage: 100.0MG UNKNOWN
     Route: 048
     Dates: start: 2023
  3. ZENHALE [Concomitant]
     Active Substance: FORMOTEROL FUMARATE\MOMETASONE FUROATE
     Dosage: 200MCG 2 PUFFS BID ( NOW USED AS PRN)
  4. GLYCOPYRROLATE\INDACATEROL\MOMETASONE FUROATE [Concomitant]
     Active Substance: GLYCOPYRROLATE\INDACATEROL\MOMETASONE FUROATE
     Dosage: 150/50/160MCG 1 PUFF/DAY
  5. SYMBICORT [Concomitant]
     Active Substance: BUDESONIDE\FORMOTEROL FUMARATE DIHYDRATE
     Dosage: 200MCG 2 PUFFS UP TO QID PRN

REACTIONS (4)
  - Anxiety [Recovering/Resolving]
  - Chest pain [Recovering/Resolving]
  - Burning sensation [Recovering/Resolving]
  - Insomnia [Recovering/Resolving]
